FAERS Safety Report 10649464 (Version 1)
Quarter: 2014Q4

REPORT INFORMATION
  Report Type: Spontaneous
  Country: US (occurrence: US)
  Receive Date: 20141212
  Receipt Date: 20141212
  Transmission Date: 20150529
  Serious: Yes (Other)
  Sender: FDA-Public Use
  Company Number: US-PFIZER INC-2014335362

PATIENT
  Age: 59 Year
  Sex: Female

DRUGS (4)
  1. PENICILLIN G PROCAINE. [Suspect]
     Active Substance: PENICILLIN G PROCAINE
     Indication: EMPYEMA
     Dosage: 1000000 IU (UNITS), UNK
     Route: 042
  2. BENZYLPENICILLIN [Concomitant]
     Active Substance: PENICILLIN G
     Indication: EMPYEMA
     Dosage: 1000000 IU (UNITS), 4X/DAY (EVERY 6 HOURS)
     Route: 042
  3. PENICILLIN G PROCAINE. [Suspect]
     Active Substance: PENICILLIN G PROCAINE
     Indication: STREPTOCOCCAL INFECTION
  4. BENZYLPENICILLIN [Concomitant]
     Active Substance: PENICILLIN G
     Indication: STREPTOCOCCAL INFECTION

REACTIONS (8)
  - Tachypnoea [Recovered/Resolved]
  - Anaphylactic reaction [Recovered/Resolved]
  - Wrong drug administered [Recovered/Resolved]
  - Anxiety [Recovered/Resolved]
  - Dyspnoea [Recovered/Resolved]
  - Dizziness [Recovered/Resolved]
  - Tinnitus [Recovered/Resolved]
  - Toxicity to various agents [Recovered/Resolved]
